FAERS Safety Report 19746112 (Version 2)
Quarter: 2022Q1

REPORT INFORMATION
  Report Type: Spontaneous
  Country: US (occurrence: None)
  Receive Date: 20210825
  Receipt Date: 20220225
  Transmission Date: 20220424
  Serious: Yes (Death, Other)
  Sender: FDA-Public Use
  Company Number: 2021A694830

PATIENT
  Age: 54 Year
  Sex: Female
  Weight: 43.1 kg

DRUGS (40)
  1. PRILOSEC OTC [Suspect]
     Active Substance: OMEPRAZOLE MAGNESIUM
     Indication: Gastrooesophageal reflux disease
     Dosage: FOR VARIOUS DATES AND YEARS
     Route: 048
  2. PRILOSEC OTC [Suspect]
     Active Substance: OMEPRAZOLE MAGNESIUM
     Indication: Gastrooesophageal reflux disease
     Dosage: ACCORDING TO THE PKG
     Route: 048
     Dates: start: 2010, end: 2019
  3. NEXIUM [Suspect]
     Active Substance: ESOMEPRAZOLE MAGNESIUM
     Indication: Gastrooesophageal reflux disease
     Dosage: 40.0MG UNKNOWN
     Route: 048
     Dates: start: 2007, end: 2010
  4. NEXIUM [Suspect]
     Active Substance: ESOMEPRAZOLE MAGNESIUM
     Indication: Gastrooesophageal reflux disease
     Dosage: GENERIC40.0MG UNKNOWN
     Route: 065
     Dates: start: 2010, end: 2011
  5. NEXIUM 24HR [Suspect]
     Active Substance: ESOMEPRAZOLE MAGNESIUM
     Indication: Gastrooesophageal reflux disease
     Dosage: ACCORDING TO THE PKG
     Route: 048
     Dates: start: 2007
  6. OMEPRAZOLE [Suspect]
     Active Substance: OMEPRAZOLE
     Indication: Gastrooesophageal reflux disease
     Dosage: GENERIC20.0MG UNKNOWN
     Route: 065
     Dates: start: 2005, end: 2019
  7. CIPROFLOXACIN [Concomitant]
     Active Substance: CIPROFLOXACIN
     Indication: Infection
     Dates: start: 2013, end: 2019
  8. CEPHALEXIN [Concomitant]
     Active Substance: CEPHALEXIN
     Indication: Infection
     Dates: start: 2017, end: 2018
  9. DICLOFENAC [Concomitant]
     Active Substance: DICLOFENAC
     Indication: Analgesic intervention supportive therapy
     Dates: start: 2017, end: 2019
  10. CELECOXIB [Concomitant]
     Active Substance: CELECOXIB
     Indication: Analgesic intervention supportive therapy
     Dates: start: 2019
  11. AMOXICILLIN [Concomitant]
     Active Substance: AMOXICILLIN
     Indication: Infection
     Dates: start: 2019
  12. AZITHROMYCIN [Concomitant]
     Active Substance: AZITHROMYCIN
     Indication: Infection
     Dates: start: 2015
  13. AZITHROMYCIN [Concomitant]
     Active Substance: AZITHROMYCIN
     Indication: Infection
     Dates: start: 2017
  14. SULFAMETHOXAZOLE [Concomitant]
     Active Substance: SULFAMETHOXAZOLE
     Indication: Analgesic intervention supportive therapy
     Dates: start: 2017
  15. ALEVE [Concomitant]
     Active Substance: NAPROXEN SODIUM
     Indication: Back pain
     Dates: start: 2013, end: 2019
  16. ADVIL [Concomitant]
     Active Substance: IBUPROFEN
     Indication: Back pain
     Dates: start: 2013, end: 2019
  17. TYLENOL [Concomitant]
     Active Substance: ACETAMINOPHEN
     Indication: Back pain
     Dates: start: 2013, end: 2019
  18. MOTRIN [Concomitant]
     Active Substance: IBUPROFEN
     Indication: Back pain
     Dates: start: 2013, end: 2019
  19. ZANTAC [Concomitant]
     Active Substance: RANITIDINE HYDROCHLORIDE
     Dosage: 150
     Dates: start: 2015
  20. ZANTAC [Concomitant]
     Active Substance: RANITIDINE HYDROCHLORIDE
     Dosage: 75
     Dates: start: 2016
  21. ZANTAC [Concomitant]
     Active Substance: RANITIDINE HYDROCHLORIDE
     Dates: start: 20180501, end: 20180521
  22. RANITIDINE [Concomitant]
     Active Substance: RANITIDINE
     Dates: start: 20190114, end: 20190202
  23. ELIQUIS [Concomitant]
     Active Substance: APIXABAN
  24. SERENOA REPENS/TROSPIUM [Concomitant]
  25. NITROFURANTOIN [Concomitant]
     Active Substance: NITROFURANTOIN
  26. PREMARIN [Concomitant]
     Active Substance: ESTROGENS, CONJUGATED
  27. PHENAZOPYRIDINE [Concomitant]
     Active Substance: PHENAZOPYRIDINE
  28. FLUCONAZOLE [Concomitant]
     Active Substance: FLUCONAZOLE
  29. TIZANIDINE [Concomitant]
     Active Substance: TIZANIDINE
  30. BENZONATATE [Concomitant]
     Active Substance: BENZONATATE
  31. CARAFATE [Concomitant]
     Active Substance: SUCRALFATE
  32. ONDANSETRON [Concomitant]
     Active Substance: ONDANSETRON
  33. PROCTOSOAM [Concomitant]
  34. VITAMIN B1 [Concomitant]
     Active Substance: THIAMINE HYDROCHLORIDE
  35. ACETAMINOPHEN\OXYCODONE HYDROCHLORIDE [Concomitant]
     Active Substance: ACETAMINOPHEN\OXYCODONE HYDROCHLORIDE
  36. PROCHLORPERAZINE [Concomitant]
     Active Substance: PROCHLORPERAZINE
  37. CYCLOBENZAPRINE [Concomitant]
     Active Substance: CYCLOBENZAPRINE
  38. LOESTRIN NOS [Concomitant]
     Active Substance: ETHINYL ESTRADIOL\NORETHINDRONE ACETATE
  39. VIRTUSSIN [Concomitant]
  40. IBUPROFEN [Concomitant]
     Active Substance: IBUPROFEN

REACTIONS (2)
  - Metastatic gastric cancer [Fatal]
  - Pneumonitis [Fatal]

NARRATIVE: CASE EVENT DATE: 20190101
